FAERS Safety Report 18220879 (Version 4)
Quarter: 2020Q4

REPORT INFORMATION
  Report Type: Other
  Country: US (occurrence: US)
  Receive Date: 20200902
  Receipt Date: 20201104
  Transmission Date: 20210113
  Serious: Yes (Other)
  Sender: FDA-Public Use
  Company Number: US-ROCHE-2104456

PATIENT
  Age: 67 Year
  Sex: Male
  Weight: 73.55 kg

DRUGS (17)
  1. OCREVUS [Suspect]
     Active Substance: OCRELIZUMAB
     Indication: RELAPSING MULTIPLE SCLEROSIS
     Dosage: HALF DOSE
     Route: 042
     Dates: start: 20180301, end: 20200331
  2. OCREVUS [Suspect]
     Active Substance: OCRELIZUMAB
     Dosage: FULL DOSE
     Route: 042
     Dates: start: 20180915
  3. OCREVUS [Suspect]
     Active Substance: OCRELIZUMAB
     Route: 042
     Dates: start: 20180315
  4. MARIJUANA [Concomitant]
     Active Substance: CANNABIS SATIVA SUBSP. INDICA TOP
     Dates: start: 201812
  5. OCREVUS [Suspect]
     Active Substance: OCRELIZUMAB
     Route: 042
     Dates: start: 20180301, end: 20200331
  6. OCREVUS [Suspect]
     Active Substance: OCRELIZUMAB
     Dosage: DATE OF TREATMENT 10/FEB/2019, 27/MAR/2019, 02/OCT/2019, 31/MAR/2020, 29/SEP/2020.
     Route: 042
     Dates: start: 20190403
  7. MYRBETRIQ [Concomitant]
     Active Substance: MIRABEGRON
     Route: 048
     Dates: start: 201908, end: 201911
  8. BENADRYL [Concomitant]
     Active Substance: DIPHENHYDRAMINE HYDROCHLORIDE
     Indication: PREMEDICATION
     Route: 048
  9. OCREVUS [Suspect]
     Active Substance: OCRELIZUMAB
     Indication: PRIMARY PROGRESSIVE MULTIPLE SCLEROSIS
     Dosage: FULL DOSE
     Route: 042
     Dates: start: 20180917
  10. MARIJUANA [Concomitant]
     Active Substance: CANNABIS SATIVA SUBSP. INDICA TOP
     Indication: MULTIPLE SCLEROSIS
     Dates: start: 2018, end: 201812
  11. AMPYRA [Concomitant]
     Active Substance: DALFAMPRIDINE
     Dates: start: 2013
  12. ALFUZOSIN [Concomitant]
     Active Substance: ALFUZOSIN
     Dates: start: 201710
  13. OCREVUS [Suspect]
     Active Substance: OCRELIZUMAB
     Dosage: SECOND HALF
     Route: 042
     Dates: start: 20180301
  14. AMPYRA [Concomitant]
     Active Substance: DALFAMPRIDINE
     Indication: PRIMARY PROGRESSIVE MULTIPLE SCLEROSIS
     Dates: start: 2011
  15. ALFUZOSIN [Concomitant]
     Active Substance: ALFUZOSIN
     Dates: start: 2016
  16. MYRBETRIQ [Concomitant]
     Active Substance: MIRABEGRON
     Route: 048
     Dates: start: 201910
  17. MYRBETRIQ [Concomitant]
     Active Substance: MIRABEGRON
     Route: 048
     Dates: start: 201911

REACTIONS (32)
  - Paraesthesia [Not Recovered/Not Resolved]
  - Mobility decreased [Not Recovered/Not Resolved]
  - Balance disorder [Unknown]
  - Drug ineffective [Unknown]
  - Dehydration [Recovered/Resolved]
  - Myalgia [Not Recovered/Not Resolved]
  - Hypoacusis [Unknown]
  - Cystitis [Not Recovered/Not Resolved]
  - Pain [Unknown]
  - Muscular weakness [Not Recovered/Not Resolved]
  - Anger [Unknown]
  - Urinary retention [Recovered/Resolved]
  - Agitation [Recovered/Resolved]
  - Dysgraphia [Not Recovered/Not Resolved]
  - Gait disturbance [Not Recovered/Not Resolved]
  - Tunnel vision [Recovered/Resolved]
  - Personality change [Recovered/Resolved]
  - Restlessness [Recovered/Resolved]
  - Chills [Recovered/Resolved]
  - Hypertension [Recovered/Resolved]
  - Spinal stenosis [Not Recovered/Not Resolved]
  - Renal cancer [Not Recovered/Not Resolved]
  - Condition aggravated [Not Recovered/Not Resolved]
  - Hallucination [Recovered/Resolved]
  - Weight decreased [Unknown]
  - Fatigue [Unknown]
  - Tremor [Not Recovered/Not Resolved]
  - Pyrexia [Recovered/Resolved]
  - Pain in extremity [Unknown]
  - Tinnitus [Not Recovered/Not Resolved]
  - Pain in extremity [Recovered/Resolved]
  - Visual impairment [Not Recovered/Not Resolved]

NARRATIVE: CASE EVENT DATE: 20180301
